FAERS Safety Report 12290170 (Version 1)
Quarter: 2016Q2

REPORT INFORMATION
  Report Type: Spontaneous
  Country: SE (occurrence: SE)
  Receive Date: 20160421
  Receipt Date: 20160421
  Transmission Date: 20160815
  Serious: Yes (Other)
  Sender: FDA-Public Use
  Company Number: SE-TEVA-652823ACC

PATIENT
  Age: 62 Year
  Sex: Female

DRUGS (10)
  1. ALENDRONATE TEVA [Suspect]
     Active Substance: ALENDRONATE SODIUM
     Indication: OSTEOPOROSIS
     Dates: start: 20141103, end: 20141207
  2. FOLINIC ACID [Concomitant]
     Active Substance: LEUCOVORIN
     Dates: end: 20141201
  3. KALCIPOS [Concomitant]
     Active Substance: CALCIUM CARBONATE
     Dates: end: 20141201
  4. BEHEPAN [Concomitant]
     Active Substance: HYDROXOCOBALAMIN
     Dates: end: 20141201
  5. BRICANYL [Concomitant]
     Active Substance: TERBUTALINE SULFATE
     Route: 055
  6. LESCOL [Concomitant]
     Active Substance: FLUVASTATIN SODIUM
     Dates: end: 20141201
  7. DIVISUN [Concomitant]
     Dates: end: 20141201
  8. SINGULAIR [Concomitant]
     Active Substance: MONTELUKAST SODIUM
     Dates: end: 20141201
  9. PULMICORT TURBUHALER [Concomitant]
     Active Substance: BUDESONIDE
  10. DUROFERON [Concomitant]
     Active Substance: FERROUS SULFATE
     Dates: end: 20141201

REACTIONS (9)
  - Dysphonia [Recovered/Resolved]
  - Productive cough [Recovered/Resolved]
  - Muscle swelling [Recovered/Resolved]
  - Pharyngeal oedema [Recovered/Resolved]
  - Dysphagia [Recovered/Resolved]
  - Oesophagitis [Recovered/Resolved]
  - Nausea [Recovered/Resolved]
  - Speech disorder [Recovered/Resolved]
  - Flatulence [Recovered/Resolved]

NARRATIVE: CASE EVENT DATE: 20141130
